FAERS Safety Report 10663471 (Version 3)
Quarter: 2017Q2

REPORT INFORMATION
  Report Type: Spontaneous
  Country: GB (occurrence: GB)
  Receive Date: 20141219
  Receipt Date: 20170526
  Transmission Date: 20170829
  Serious: Yes (Other)
  Sender: FDA-Public Use
  Company Number: GB-AMGEN-GBRSP2014019282

PATIENT
  Age: 54 Year
  Sex: Male

DRUGS (1)
  1. ENBREL [Suspect]
     Active Substance: ETANERCEPT
     Indication: PRODUCT USED FOR UNKNOWN INDICATION
     Dosage: 50 MG, UNK
     Route: 058

REACTIONS (6)
  - Ankylosing spondylitis [Not Recovered/Not Resolved]
  - Viral upper respiratory tract infection [Unknown]
  - Joint swelling [Unknown]
  - Fluid retention [Unknown]
  - Peripheral swelling [Recovering/Resolving]
  - Confusional state [Unknown]
